FAERS Safety Report 6957532-1 (Version None)
Quarter: 2010Q3

REPORT INFORMATION
  Report Type: 
  Country: None (occurrence: None)
  Receive Date: 20100831
  Receipt Date: 20100818
  Transmission Date: 20110219
  Serious: Yes (Hospitalization, Other)
  Sender: FDA-Public Use
  Company Number: BE-CELGENEUS-013-21880-10040746

PATIENT
  Sex: Female

DRUGS (9)
  1. REVLIMID [Suspect]
     Indication: MYELOFIBROSIS
     Route: 048
     Dates: start: 20100212, end: 20100325
  2. EMCONCOR [Concomitant]
     Indication: HYPERTENSION
     Route: 065
  3. SPIRONOLACTONE [Concomitant]
     Indication: HYPERTENSION
     Route: 065
  4. FUROSEMIDE [Concomitant]
     Indication: HYPERTENSION
     Route: 065
  5. LANOXIN [Concomitant]
     Indication: HEART INJURY
     Route: 065
  6. SINTROM [Concomitant]
     Indication: HEART INJURY
     Route: 065
  7. LEVOTHYROXINE [Concomitant]
     Indication: HYPOTHYROIDISM
     Route: 065
  8. ZANTAC [Concomitant]
     Indication: GASTRITIS
     Route: 065
  9. WHOLE BLOOD [Concomitant]
     Route: 051
     Dates: start: 20100327, end: 20100519

REACTIONS (1)
  - ACUTE LEUKAEMIA [None]
